FAERS Safety Report 7994999-4 (Version None)
Quarter: 2011Q4

REPORT INFORMATION
  Report Type: 
  Country: None (occurrence: None)
  Receive Date: 20111220
  Receipt Date: 20111213
  Transmission Date: 20120403
  Serious: Yes (Hospitalization, Other)
  Sender: FDA-Public Use
  Company Number: US-US-EMD SERONO, INC.-7101802

PATIENT
  Sex: Female

DRUGS (2)
  1. REBIF [Suspect]
     Route: 058
     Dates: start: 20110801
  2. REBIF [Suspect]
     Indication: PRODUCT USED FOR UNKNOWN INDICATION
     Route: 058
     Dates: start: 20091201

REACTIONS (5)
  - UTERINE PROLAPSE [None]
  - CONSTIPATION [None]
  - RECTAL PROLAPSE [None]
  - UMBILICAL HERNIA [None]
  - BLADDER PROLAPSE [None]
